FAERS Safety Report 5684227-7 (Version None)
Quarter: 2008Q1

REPORT INFORMATION
  Report Type: 
  Country: None (occurrence: None)
  Receive Date: 20080328
  Receipt Date: 20071217
  Transmission Date: 20080703
  Serious: No
  Sender: FDA-Public Use
  Company Number: US-AMGEN-KDL257145

PATIENT
  Sex: Female

DRUGS (4)
  1. NEULASTA [Suspect]
     Indication: CHEMOTHERAPY
  2. DOCETAXEL [Concomitant]
  3. DOXORUBICIN HYDROCHLORIDE [Concomitant]
  4. CYCLOPHOSPHAMIDE [Concomitant]

REACTIONS (2)
  - BODY TEMPERATURE FLUCTUATION [None]
  - NAUSEA [None]
